FAERS Safety Report 8619540 (Version 2)
Quarter: 2013Q2

REPORT INFORMATION
  Report Type: Spontaneous
  Country: US (occurrence: None)
  Receive Date: 20120518
  Receipt Date: 20130404
  Transmission Date: 20140414
  Serious: Yes (Death, Hospitalization, Other)
  Sender: FDA-Public Use
  Company Number: 2012PROUSA01388

PATIENT
  Age: 73 Year
  Sex: Male
  Weight: 70.7 kg

DRUGS (1)
  1. PROVENGE [Suspect]
     Indication: PROSTATE CANCER METASTATIC
     Dosage: 250 ML, SINGLE, INTRAVENOUS
     Route: 042
     Dates: start: 20120308, end: 20120308

REACTIONS (5)
  - Renal failure acute [None]
  - Thrombocytopenia [None]
  - Anaemia [None]
  - Epistaxis [None]
  - Pancytopenia [None]
